FAERS Safety Report 6726658-X (Version None)
Quarter: 2010Q2

REPORT INFORMATION
  Report Type: 
  Country: None (occurrence: None)
  Receive Date: 20100514
  Receipt Date: 20100506
  Transmission Date: 20101027
  Serious: Yes (Hospitalization, Other)
  Sender: FDA-Public Use
  Company Number: CA-ABBOTT-10P-028-0642414-00

PATIENT
  Sex: Female
  Weight: 113.05 kg

DRUGS (3)
  1. HUMIRA [Suspect]
     Indication: CROHN'S DISEASE
     Route: 058
     Dates: start: 20090804, end: 20100414
  2. HUMIRA [Suspect]
     Route: 058
     Dates: start: 20100126
  3. CORTIFOAM [Concomitant]
     Indication: ANORECTAL DISORDER
     Route: 061

REACTIONS (1)
  - ABDOMINAL HERNIA [None]
